FAERS Safety Report 7263398-5 (Version None)
Quarter: 2011Q1

REPORT INFORMATION
  Report Type: 
  Country: None (occurrence: None)
  Receive Date: 20110130
  Receipt Date: 20101026
  Transmission Date: 20110831
  Serious: No
  Sender: FDA-Public Use
  Company Number: US-ABBOTT-10P-163-0681784-00

PATIENT
  Sex: Female
  Weight: 54.48 kg

DRUGS (7)
  1. HUMIRA [Suspect]
     Indication: ARTHRITIS
     Route: 058
     Dates: start: 20100801
  2. PLAQUENIL [Concomitant]
     Indication: ARTHRITIS
  3. VOLTAREN [Concomitant]
     Indication: ARTHRITIS
  4. PROTONIX [Concomitant]
     Indication: PRODUCT USED FOR UNKNOWN INDICATION
  5. FOLIC ACID [Concomitant]
     Indication: VITAMIN SUPPLEMENTATION
  6. ASPIRIN [Concomitant]
     Indication: PRODUCT USED FOR UNKNOWN INDICATION
  7. METHOTREXATE [Concomitant]
     Indication: ARTHRITIS

REACTIONS (1)
  - INJECTION SITE RASH [None]
